FAERS Safety Report 9409588 (Version 1)
Quarter: 2013Q3

REPORT INFORMATION
  Report Type: Report from Study
  Country: CA (occurrence: CA)
  Receive Date: 20130719
  Receipt Date: 20130719
  Transmission Date: 20140515
  Serious: Yes (Other)
  Sender: FDA-Public Use
  Company Number: PHHY2013CA076103

PATIENT
  Sex: Male

DRUGS (1)
  1. CLOZARIL [Suspect]
     Dosage: UNK UKN, UNK
     Dates: start: 20030416

REACTIONS (4)
  - Right ventricular hypertrophy [Unknown]
  - Sinus tachycardia [Unknown]
  - Electrocardiogram ST-T segment abnormal [Unknown]
  - QRS axis abnormal [Unknown]
